FAERS Safety Report 23071260 (Version 2)
Quarter: 2023Q4

REPORT INFORMATION
  Report Type: Report from Study
  Country: DE (occurrence: DE)
  Receive Date: 20231016
  Receipt Date: 20231025
  Transmission Date: 20240110
  Serious: Yes (Hospitalization)
  Sender: FDA-Public Use
  Company Number: DE-ABBVIE-5451239

PATIENT
  Age: 59 Year
  Sex: Male
  Weight: 88 kg

DRUGS (2)
  1. SKYRIZI [Suspect]
     Active Substance: RISANKIZUMAB-RZAA
     Indication: Psoriatic arthropathy
     Route: 058
     Dates: start: 20190626
  2. SKYRIZI [Suspect]
     Active Substance: RISANKIZUMAB-RZAA
     Indication: Psoriasis

REACTIONS (3)
  - Hyperkalaemia [Recovered/Resolved with Sequelae]
  - Ischaemic skin ulcer [Unknown]
  - Peripheral arterial occlusive disease [Recovered/Resolved with Sequelae]

NARRATIVE: CASE EVENT DATE: 20221013
